FAERS Safety Report 7116046-9 (Version None)
Quarter: 2010Q4

REPORT INFORMATION
  Report Type: 
  Country: None (occurrence: None)
  Receive Date: 20101118
  Receipt Date: 20101118
  Transmission Date: 20110411
  Serious: Yes (Other)
  Sender: FDA-Public Use
  Company Number: None

PATIENT
  Sex: Male
  Weight: 93.441 kg

DRUGS (6)
  1. HUMIRA [Suspect]
     Indication: PSORIASIS
     Dosage: 40 MG Q 14 DAY SQ (057) 1/2010 - PRESENT AND 1 YEAR (~1-2 YEARS AGO)
     Route: 058
  2. HUMIRA [Suspect]
     Indication: PSORIATIC ARTHROPATHY
     Dosage: 40 MG Q 14 DAY SQ (057) 1/2010 - PRESENT AND 1 YEAR (~1-2 YEARS AGO)
     Route: 058
  3. HUMIRA [Suspect]
     Indication: PSORIASIS
     Dosage: 40 MG Q 14 DAY SQ (057) 1/2010 - PRESENT AND 1 YEAR (~1-2 YEARS AGO)
     Route: 058
     Dates: start: 20100101
  4. HUMIRA [Suspect]
     Indication: PSORIATIC ARTHROPATHY
     Dosage: 40 MG Q 14 DAY SQ (057) 1/2010 - PRESENT AND 1 YEAR (~1-2 YEARS AGO)
     Route: 058
     Dates: start: 20100101
  5. CLOBETASOL PROPIONATE [Concomitant]
  6. DOVONEX [Concomitant]

REACTIONS (1)
  - MALIGNANT MELANOMA [None]
